FAERS Safety Report 24328645 (Version 3)
Quarter: 2024Q4

REPORT INFORMATION
  Report Type: Spontaneous
  Country: US (occurrence: US)
  Receive Date: 20240917
  Receipt Date: 20241022
  Transmission Date: 20250115
  Serious: Yes (Other)
  Sender: IPSEN BIOPHARMACEUTICALS, INC.
  Company Number: US-IPSEN Group, Research and Development-2024-17638

PATIENT
  Age: 87 Year
  Sex: Female
  Weight: 56.2 kg

DRUGS (1)
  1. TAZVERIK [Suspect]
     Active Substance: TAZEMETOSTAT HYDROBROMIDE
     Indication: Follicular lymphoma
     Dosage: 600 MG TWICE DAILY
     Route: 048
     Dates: start: 20240522

REACTIONS (1)
  - Malignant neoplasm progression [Recovering/Resolving]
